FAERS Safety Report 6273112-8 (Version None)
Quarter: 2009Q3

REPORT INFORMATION
  Report Type: 
  Country: None (occurrence: None)
  Receive Date: 20090720
  Receipt Date: 20090708
  Transmission Date: 20100115
  Serious: Yes (Hospitalization)
  Sender: FDA-Public Use
  Company Number: AR-JNJFOC-20090702605

PATIENT
  Sex: Female
  Weight: 51 kg

DRUGS (33)
  1. GOLIMUMAB [Suspect]
     Route: 058
  2. GOLIMUMAB [Suspect]
     Route: 058
  3. GOLIMUMAB [Suspect]
     Route: 058
  4. GOLIMUMAB [Suspect]
     Route: 058
  5. GOLIMUMAB [Suspect]
     Route: 058
  6. GOLIMUMAB [Suspect]
     Route: 058
  7. GOLIMUMAB [Suspect]
     Route: 058
  8. GOLIMUMAB [Suspect]
     Route: 058
  9. GOLIMUMAB [Suspect]
     Route: 058
  10. GOLIMUMAB [Suspect]
     Route: 058
  11. GOLIMUMAB [Suspect]
     Route: 058
  12. GOLIMUMAB [Suspect]
     Route: 058
  13. GOLIMUMAB [Suspect]
     Route: 058
  14. GOLIMUMAB [Suspect]
     Route: 058
  15. GOLIMUMAB [Suspect]
     Route: 058
  16. GOLIMUMAB [Suspect]
     Route: 058
  17. GOLIMUMAB [Suspect]
     Route: 058
  18. GOLIMUMAB [Suspect]
     Route: 058
  19. GOLIMUMAB [Suspect]
     Indication: RHEUMATOID ARTHRITIS
     Route: 058
  20. METHOTREXATE [Suspect]
     Indication: RHEUMATOID ARTHRITIS
     Route: 048
  21. RISEDRONATE SODIUM [Concomitant]
     Route: 048
  22. FOLIC ACID [Concomitant]
     Route: 048
  23. ENALAPRIL MALEATE [Concomitant]
     Route: 048
  24. ASCORBIC ACID [Concomitant]
     Route: 048
  25. LEVOFLOXACIN [Concomitant]
     Route: 048
  26. ASPIRIN [Concomitant]
     Route: 048
  27. PLATSULA [Concomitant]
     Route: 061
  28. METHOTREXATE [Concomitant]
     Route: 048
  29. DIPROSALIC [Concomitant]
     Route: 061
  30. MEPREDNISONA [Concomitant]
     Route: 048
  31. DAFLON [Concomitant]
     Route: 048
  32. VENART [Concomitant]
     Route: 048
  33. CALCIUM CITRATE [Concomitant]
     Route: 048

REACTIONS (1)
  - HERPES ZOSTER [None]
